FAERS Safety Report 15815070 (Version 1)
Quarter: 2019Q1

REPORT INFORMATION
  Report Type: Spontaneous
  Country: ES (occurrence: ES)
  Receive Date: 20190112
  Receipt Date: 20190112
  Transmission Date: 20190417
  Serious: Yes (Death, Hospitalization)
  Sender: FDA-Public Use
  Company Number: ES-TEVA-2019-ES-997873

PATIENT
  Age: 73 Year
  Sex: Male

DRUGS (2)
  1. TRAMADOL (2389A) [Suspect]
     Active Substance: TRAMADOL
     Dosage: 100 MG DIA
     Route: 042
     Dates: start: 20180131, end: 20180215
  2. METOCLOPRAMIDA (1958A) [Concomitant]
     Active Substance: METOCLOPRAMIDE HYDROCHLORIDE
     Dosage: 10 MG CAD A8 HORAS
     Route: 042
     Dates: start: 20180131

REACTIONS (1)
  - Ileus paralytic [Not Recovered/Not Resolved]

NARRATIVE: CASE EVENT DATE: 20180208
